FAERS Safety Report 6030514-2 (Version None)
Quarter: 2009Q1

REPORT INFORMATION
  Report Type: 
  Country: None (occurrence: None)
  Receive Date: 20090106
  Receipt Date: 20090106
  Transmission Date: 20090719
  Serious: Yes (Life-Threatening, Other)
  Sender: FDA-Public Use
  Company Number: None

PATIENT
  Age: 47 Year
  Sex: Female
  Weight: 75.2971 kg

DRUGS (1)
  1. AVELOX [Suspect]
     Indication: SINUSITIS
     Dosage: 1 PILL PER DAY PO
     Route: 048
     Dates: start: 20081225, end: 20081228

REACTIONS (11)
  - ARTHRALGIA [None]
  - DISORIENTATION [None]
  - HEADACHE [None]
  - INFLUENZA [None]
  - INSOMNIA [None]
  - LIMB INJURY [None]
  - MALAISE [None]
  - MIGRAINE [None]
  - MYALGIA [None]
  - NAUSEA [None]
  - NIGHTMARE [None]
